FAERS Safety Report 7124749-5 (Version None)
Quarter: 2010Q4

REPORT INFORMATION
  Report Type: 
  Country: None (occurrence: None)
  Receive Date: 20101123
  Receipt Date: 20101123
  Transmission Date: 20110411
  Serious: Yes (Life-Threatening, Hospitalization, Other)
  Sender: FDA-Public Use
  Company Number: None

PATIENT
  Age: 35 Year
  Weight: 86.637 kg

DRUGS (1)
  1. EFUDEX [Suspect]

REACTIONS (11)
  - CEREBROVASCULAR ACCIDENT [None]
  - CHILLS [None]
  - DECREASED APPETITE [None]
  - DIHYDROPYRIMIDINE DEHYDROGENASE DEFICIENCY [None]
  - FAECAL INCONTINENCE [None]
  - FEELING DRUNK [None]
  - GASTROINTESTINAL INFLAMMATION [None]
  - HAEMATOCHEZIA [None]
  - HEADACHE [None]
  - RENAL PAIN [None]
  - SEMEN VOLUME DECREASED [None]
